FAERS Safety Report 10149334 (Version 7)
Quarter: 2015Q2

REPORT INFORMATION
  Report Type: Spontaneous
  Country: US (occurrence: US)
  Receive Date: 20140502
  Receipt Date: 20150526
  Transmission Date: 20150821
  Serious: Yes (Hospitalization, Other)
  Sender: FDA-Public Use
  Company Number: US-009507513-1012USA02367

PATIENT
  Sex: Female
  Weight: 73.48 kg

DRUGS (8)
  1. FOSAMAX [Suspect]
     Active Substance: ALENDRONATE SODIUM
     Indication: OSTEOPENIA
     Dosage: 70 MG, QW
     Route: 048
     Dates: start: 20010424, end: 20061212
  2. CALCIUM (UNSPECIFIED) [Concomitant]
     Active Substance: CALCIUM
     Dosage: 1000 MG, QD
     Route: 048
     Dates: start: 2000
  3. ACIPHEX [Concomitant]
     Active Substance: RABEPRAZOLE SODIUM
     Dates: start: 200008, end: 2001
  4. BONIVA [Suspect]
     Active Substance: IBANDRONATE SODIUM
     Indication: OSTEOPENIA
     Dosage: 3MG/3ML
     Route: 042
     Dates: start: 200612, end: 201004
  5. FOSAMAX [Suspect]
     Active Substance: ALENDRONATE SODIUM
     Indication: OSTEOPOROSIS PROPHYLAXIS
     Dosage: 10 MG, QD
     Route: 048
     Dates: start: 1998, end: 20001004
  6. SYNTHROID [Concomitant]
     Active Substance: LEVOTHYROXINE SODIUM
     Indication: HYPOTHYROIDISM
     Dates: start: 1991
  7. FOSAMAX [Suspect]
     Active Substance: ALENDRONATE SODIUM
     Indication: OSTEOPOROSIS
  8. BONIVA [Suspect]
     Active Substance: IBANDRONATE SODIUM
     Indication: OSTEOPOROSIS

REACTIONS (74)
  - Diverticulitis [Unknown]
  - Diverticulitis [Recovering/Resolving]
  - Vomiting [Unknown]
  - Hypertension [Not Recovered/Not Resolved]
  - Diverticulitis [Not Recovered/Not Resolved]
  - Vitamin D deficiency [Unknown]
  - Foot fracture [Unknown]
  - Renal cyst [Unknown]
  - Ear pruritus [Unknown]
  - Gastritis erosive [Unknown]
  - Lentigo [Unknown]
  - Arthropathy [Unknown]
  - Gingival swelling [Unknown]
  - Abdominal pain lower [Not Recovered/Not Resolved]
  - Foot fracture [Unknown]
  - Vaginal fistula [Unknown]
  - Femur fracture [Unknown]
  - Pelvic fracture [Unknown]
  - Fracture nonunion [Unknown]
  - Chest pain [Unknown]
  - Tooth fracture [Unknown]
  - Post procedural constipation [Recovered/Resolved]
  - Low turnover osteopathy [Unknown]
  - Muscle strain [Unknown]
  - Hyperlipidaemia [Unknown]
  - Arrhythmia [Unknown]
  - Arthritis [Unknown]
  - Tongue ulceration [Unknown]
  - Nausea [Unknown]
  - Abdominal pain [Unknown]
  - Insomnia [Unknown]
  - Muscular weakness [Unknown]
  - Anxiety [Unknown]
  - Sacroiliitis [Unknown]
  - Rheumatoid arthritis [Unknown]
  - Urinary tract infection [Unknown]
  - Seborrhoeic keratosis [Unknown]
  - Dizziness [Unknown]
  - Anaemia postoperative [Recovered/Resolved]
  - Femur fracture [Recovered/Resolved]
  - Gastrointestinal ulcer [Unknown]
  - Hypercholesterolaemia [Not Recovered/Not Resolved]
  - Rhinitis allergic [Unknown]
  - Impaired fasting glucose [Unknown]
  - Pain [Not Recovered/Not Resolved]
  - Spinal osteoarthritis [Unknown]
  - Oesophagitis [Unknown]
  - Drug ineffective [Unknown]
  - Femur fracture [Recovered/Resolved]
  - Postoperative fever [Recovered/Resolved]
  - Haematuria [Unknown]
  - Supraventricular tachycardia [Unknown]
  - Depression [Not Recovered/Not Resolved]
  - Pubis fracture [Unknown]
  - Bursitis [Not Recovered/Not Resolved]
  - Fall [Unknown]
  - Meniscus injury [Unknown]
  - Plica syndrome [Unknown]
  - Gingival pain [Unknown]
  - Arthralgia [Not Recovered/Not Resolved]
  - Intramedullary rod insertion [Unknown]
  - Diverticulum [Unknown]
  - Otitis media acute [Unknown]
  - Haematoma [Unknown]
  - Gingivitis [Unknown]
  - Arthralgia [Unknown]
  - Limb discomfort [Unknown]
  - Hip fracture [Recovered/Resolved]
  - Joint instability [Unknown]
  - Hyperthyroidism [Unknown]
  - Goitre [Unknown]
  - Spinal osteoarthritis [Unknown]
  - Synovitis [Unknown]
  - Palpitations [Unknown]

NARRATIVE: CASE EVENT DATE: 200012
